FAERS Safety Report 17531787 (Version 1)
Quarter: 2020Q1

REPORT INFORMATION
  Report Type: Spontaneous
  Country: US (occurrence: US)
  Receive Date: 20200311
  Receipt Date: 20200311
  Transmission Date: 20200409
  Serious: No
  Sender: FDA-Public Use
  Company Number: US-CUMBERLAND-2020-US-000013

PATIENT
  Age: 56 Year
  Sex: Female

DRUGS (1)
  1. KRISTALOSE [Suspect]
     Active Substance: LACTULOSE
     Route: 048

REACTIONS (1)
  - Drug ineffective [Unknown]
